FAERS Safety Report 5808632-0 (Version None)
Quarter: 2008Q3

REPORT INFORMATION
  Report Type: 
  Country: None (occurrence: None)
  Receive Date: 20080714
  Receipt Date: 20080703
  Transmission Date: 20090109
  Serious: Yes (Hospitalization)
  Sender: FDA-Public Use
  Company Number: DE-AMGEN-UK277869

PATIENT
  Sex: Female
  Weight: 57 kg

DRUGS (4)
  1. NEULASTA [Suspect]
     Indication: NEUTROPENIA
     Route: 058
     Dates: start: 20080327, end: 20080417
  2. CYCLOPHOSPHAMIDE [Suspect]
  3. FLUOROURACIL [Concomitant]
  4. EPIRUBICIN [Concomitant]

REACTIONS (3)
  - HEART RATE INCREASED [None]
  - LEUKOCYTOSIS [None]
  - NAUSEA [None]
